FAERS Safety Report 4736460-6 (Version None)
Quarter: 2005Q3

REPORT INFORMATION
  Report Type: 
  Country: None (occurrence: None)
  Receive Date: 20050805
  Receipt Date: 20050805
  Transmission Date: 20060218
  Serious: Yes (Death)
  Sender: FDA-Public Use
  Company Number: None

PATIENT
  Age: 45 Year
  Sex: Female

DRUGS (10)
  1. AXERT [Suspect]
     Indication: MIGRAINE
     Dosage: 1 TABLET ONSET MR IN 2 HRS.; PICKED UP 7/19 FROM PHARM
  2. RELPAX [Suspect]
     Indication: MIGRAINE
     Dosage: 1 ONSET H/A MR Q 2 H MAX 2/DAY; F/U 7/31 FROM PHARMACY
  3. NEXIUM [Concomitant]
  4. ASTELIN [Concomitant]
  5. TIZANIDINE HCL [Concomitant]
  6. RELAFEN [Concomitant]
  7. MOTRIN [Concomitant]
  8. ALEVE [Concomitant]
  9. LODINE [Concomitant]
  10. CELEBREX [Concomitant]

REACTIONS (12)
  - ABDOMINAL PAIN [None]
  - ACIDOSIS [None]
  - CARDIAC ARREST [None]
  - DIARRHOEA [None]
  - ELECTROMECHANICAL DISSOCIATION [None]
  - GASTRIC DISORDER [None]
  - GASTROINTESTINAL DISORDER [None]
  - GASTROINTESTINAL HAEMORRHAGE [None]
  - HYPOTENSION [None]
  - INTESTINAL INFARCTION [None]
  - MUCOUS MEMBRANE DISORDER [None]
  - VOMITING [None]
